FAERS Safety Report 5076781-3 (Version None)
Quarter: 2006Q3

REPORT INFORMATION
  Report Type: 
  Country: None (occurrence: None)
  Receive Date: 20060807
  Receipt Date: 20060726
  Transmission Date: 20061208
  Serious: Yes (Hospitalization)
  Sender: FDA-Public Use
  Company Number: BR200607004706

PATIENT
  Age: 74 Year
  Sex: Female

DRUGS (7)
  1. FORTEO [Suspect]
     Indication: OSTEOPOROSIS
     Dosage: 20 UG, DAILY (1/D), SUBCUTANEOUS
     Route: 058
     Dates: start: 20050101
  2. FORTEO [Concomitant]
  3. OMEPRAZOLE [Concomitant]
  4. VOLTAREN [Concomitant]
  5. HYDROCHLOROTHIAZIDE [Concomitant]
  6. CHLOROQUINE (CHLOROQUINE) [Concomitant]
  7. MELOXICAM (MELOXICAM) [Concomitant]

REACTIONS (5)
  - ERYSIPELAS [None]
  - KNEE ARTHROPLASTY [None]
  - PLASTIC SURGERY [None]
  - RHEUMATOID ARTHRITIS [None]
  - SPINAL FRACTURE [None]
